FAERS Safety Report 4448510-5 (Version None)
Quarter: 2004Q3

REPORT INFORMATION
  Report Type: 
  Country: None (occurrence: None)
  Receive Date: 20040914
  Receipt Date: 20040831
  Transmission Date: 20050211
  Serious: Yes (Life-Threatening, Hospitalization)
  Sender: FDA-Public Use
  Company Number: US-JNJFOC-20040900689

PATIENT
  Sex: Male
  Weight: 110.68 kg

DRUGS (13)
  1. INFLIXIMAB [Suspect]
     Route: 042
  2. INFLIXIMAB [Suspect]
     Route: 042
  3. INFLIXIMAB [Suspect]
     Route: 042
  4. INFLIXIMAB [Suspect]
     Route: 042
  5. INFLIXIMAB [Suspect]
     Indication: CROHN'S DISEASE
     Route: 042
  6. ANTIBIOTICS [Concomitant]
  7. GLYBURIDE [Concomitant]
  8. INSULIN [Concomitant]
  9. ATENOLOL [Concomitant]
  10. ENALAPRIL [Concomitant]
  11. HYDROCHLOROTHIAZIDE [Concomitant]
  12. ACTOS [Concomitant]
  13. ASPIRIN [Concomitant]

REACTIONS (3)
  - ADENOCARCINOMA [None]
  - COLON CANCER [None]
  - RECTAL HAEMORRHAGE [None]
